FAERS Safety Report 24022560 (Version 4)
Quarter: 2024Q3

REPORT INFORMATION
  Report Type: Spontaneous
  Country: IN (occurrence: IN)
  Receive Date: 20240627
  Receipt Date: 20240710
  Transmission Date: 20241017
  Serious: No
  Sender: ROCHE
  Company Number: IN-ROCHE-3502611

PATIENT
  Age: 81 Year
  Sex: Female

DRUGS (7)
  1. VABYSMO [Suspect]
     Active Substance: FARICIMAB\FARICIMAB-SVOA
     Indication: Polypoidal choroidal vasculopathy
     Dosage: NEXT INFUSION START DATE: 27-APR-2024
     Route: 050
     Dates: start: 20240129
  2. BROLUCIZUMAB [Concomitant]
     Active Substance: BROLUCIZUMAB
     Dates: start: 20230107
  3. BROLUCIZUMAB [Concomitant]
     Active Substance: BROLUCIZUMAB
     Dates: start: 20230529
  4. BROLUCIZUMAB [Concomitant]
     Active Substance: BROLUCIZUMAB
     Dates: start: 20230823
  5. BROLUCIZUMAB [Concomitant]
     Active Substance: BROLUCIZUMAB
     Dates: start: 20231111
  6. GATIFLOXACIN [Concomitant]
     Active Substance: GATIFLOXACIN
     Dosage: 1 DROP EVERY HOURLY FOR 29/JAN/2024 AND 1 DROP 6 TIMES DAILY FOR 1 WEEK.
     Route: 047
     Dates: start: 20240129
  7. REFRESH TEARS [Concomitant]
     Active Substance: CARBOXYMETHYLCELLULOSE SODIUM
     Dosage: 1 DROP 4 TIMES A DAY FOR ONE MONTH
     Route: 047
     Dates: start: 20240129

REACTIONS (2)
  - Off label use [Unknown]
  - No adverse event [Unknown]

NARRATIVE: CASE EVENT DATE: 20240129
